FAERS Safety Report 8505743-6 (Version None)
Quarter: 2012Q3

REPORT INFORMATION
  Report Type: 
  Country: None (occurrence: None)
  Receive Date: 20120712
  Receipt Date: 20120705
  Transmission Date: 20120928
  Serious: Yes (Other)
  Sender: FDA-Public Use
  Company Number: PHEH2011US05493

PATIENT
  Sex: Female
  Weight: 57.596 kg

DRUGS (14)
  1. NEURONTIN [Concomitant]
     Dosage: 1600 MG, TID
  2. TRAZODONE HYDROCHLORIDE [Concomitant]
     Dosage: 100 MG, QD
  3. LAMOTRIGINE [Concomitant]
     Dosage: UNK UKN, UNK
  4. VALIUM [Concomitant]
     Dosage: 10 MG, PRN
  5. PROVIGIL [Concomitant]
     Dosage: 200 MG, QD
  6. SYNTHROID [Concomitant]
     Dosage: UNK UKN, UNK
  7. SEROQUEL [Concomitant]
     Dosage: UNK UKN, UNK
  8. LITHIUM CARBONATE [Concomitant]
     Dosage: UNK UKN, UNK
  9. GILENYA [Suspect]
     Indication: MULTIPLE SCLEROSIS
     Dosage: 0.5 MG, QD
     Route: 048
     Dates: start: 20110914
  10. CLONIDINE [Suspect]
     Indication: PANIC ATTACK
     Dosage: 0.1 MG, TID
  11. TOPAMAX [Concomitant]
     Dosage: UNK UKN, UNK
  12. HYDROXYZINE [Concomitant]
     Dosage: UNK UKN, UNK
  13. CELEXA [Concomitant]
     Dosage: 120 MG, QD
  14. FIORICET [Concomitant]
     Dosage: UNK UKN, UNK

REACTIONS (8)
  - FEELING ABNORMAL [None]
  - VISION BLURRED [None]
  - HEADACHE [None]
  - CONVULSION [None]
  - ASTHENIA [None]
  - DIZZINESS [None]
  - ELECTROENCEPHALOGRAM ABNORMAL [None]
  - VERTIGO [None]
